FAERS Safety Report 17736898 (Version 1)
Quarter: 2020Q2

REPORT INFORMATION
  Report Type: Spontaneous
  Country: CA (occurrence: CA)
  Receive Date: 20200502
  Receipt Date: 20200502
  Transmission Date: 20200714
  Serious: Yes (Other)
  Sender: FDA-Public Use
  Company Number: CA-AUROBINDO-AUR-APL-2020-021501

PATIENT
  Age: 57 Year
  Sex: Male

DRUGS (16)
  1. FENTANYL. [Suspect]
     Active Substance: FENTANYL
     Indication: INDUCTION OF ANAESTHESIA
  2. SEVOFLURANE. [Suspect]
     Active Substance: SEVOFLURANE
     Indication: PERIPHERAL NERVE TRANSPOSITION
     Dosage: 60 MILLIGRAM
     Route: 065
  3. SEVOFLURANE. [Suspect]
     Active Substance: SEVOFLURANE
     Indication: INDUCTION OF ANAESTHESIA
  4. DEXMEDETOMIDINE HYDROCHLORIDE. [Suspect]
     Active Substance: DEXMEDETOMIDINE HYDROCHLORIDE
     Indication: INDUCTION OF ANAESTHESIA
     Dosage: UNK
     Route: 065
  5. MIDAZOLAM. [Suspect]
     Active Substance: MIDAZOLAM
     Indication: PERIPHERAL NERVE TRANSPOSITION
     Dosage: UNK
     Route: 065
  6. FENTANYL. [Suspect]
     Active Substance: FENTANYL
     Indication: PERIPHERAL NERVE TRANSPOSITION
     Dosage: 200 MICROGRAM
     Route: 065
  7. FENTANYL. [Suspect]
     Active Substance: FENTANYL
     Indication: PERIPHERAL NERVE TRANSPOSITION
     Dosage: UNK
     Route: 065
  8. DEXMEDETOMIDINE HYDROCHLORIDE. [Suspect]
     Active Substance: DEXMEDETOMIDINE HYDROCHLORIDE
     Indication: PERIPHERAL NERVE TRANSPOSITION
     Dosage: UNK
     Route: 042
  9. FENTANYL. [Suspect]
     Active Substance: FENTANYL
     Indication: INDUCTION OF ANAESTHESIA
  10. PROPOFOL. [Suspect]
     Active Substance: PROPOFOL
     Indication: INDUCTION OF ANAESTHESIA
  11. SEVOFLURANE. [Suspect]
     Active Substance: SEVOFLURANE
     Indication: PERIPHERAL NERVE TRANSPOSITION
     Dosage: UNK
     Route: 065
  12. SEVOFLURANE. [Suspect]
     Active Substance: SEVOFLURANE
     Indication: INDUCTION OF ANAESTHESIA
  13. MIDAZOLAM. [Suspect]
     Active Substance: MIDAZOLAM
     Indication: INDUCTION OF ANAESTHESIA
     Dosage: 2 MILLIGRAM
     Route: 042
  14. PROPOFOL. [Suspect]
     Active Substance: PROPOFOL
     Indication: PERIPHERAL NERVE TRANSPOSITION
     Dosage: 200 MILLIGRAM
     Route: 065
  15. PROPOFOL. [Suspect]
     Active Substance: PROPOFOL
     Indication: PERIPHERAL NERVE TRANSPOSITION
     Dosage: UNK
     Route: 065
  16. PROPOFOL. [Suspect]
     Active Substance: PROPOFOL
     Indication: INDUCTION OF ANAESTHESIA

REACTIONS (5)
  - Nausea [Unknown]
  - Tachycardia [Unknown]
  - Tachypnoea [Unknown]
  - Dyskinesia [Unknown]
  - Seizure like phenomena [Unknown]
